FAERS Safety Report 8063778-4 (Version None)
Quarter: 2012Q1

REPORT INFORMATION
  Report Type: 
  Country: None (occurrence: None)
  Receive Date: 20120123
  Receipt Date: 20120110
  Transmission Date: 20120608
  Serious: Yes (Hospitalization)
  Sender: FDA-Public Use
  Company Number: JP-MERCK-1007USA01255

PATIENT
  Age: 73 Year
  Sex: Female
  Weight: 56 kg

DRUGS (5)
  1. AMARYL [Concomitant]
     Route: 048
  2. ACTOS [Concomitant]
     Route: 048
  3. RECALBON [Suspect]
     Indication: OSTEOPOROSIS
     Route: 048
     Dates: start: 20091201, end: 20100521
  4. FOSAMAX [Suspect]
     Indication: OSTEOPOROSIS
     Route: 048
     Dates: start: 20050901, end: 20091101
  5. GLUCOBAY [Concomitant]
     Route: 048

REACTIONS (1)
  - FEMUR FRACTURE [None]
